FAERS Safety Report 6733823-4 (Version None)
Quarter: 2010Q2

REPORT INFORMATION
  Report Type: 
  Country: None (occurrence: None)
  Receive Date: 20100520
  Receipt Date: 20100505
  Transmission Date: 20101027
  Serious: Yes (Other)
  Sender: FDA-Public Use
  Company Number: US-JNJFOC-20100504253

PATIENT
  Age: 18 Year
  Sex: Female

DRUGS (5)
  1. CHILDREN'S MOTRIN [Suspect]
  2. CHILDREN'S MOTRIN [Suspect]
     Indication: DRUG USE FOR UNKNOWN INDICATION
  3. PPI [Concomitant]
  4. FLAGYL [Concomitant]
  5. CIPRO [Concomitant]

REACTIONS (8)
  - ABNORMAL FAECES [None]
  - CHEST PAIN [None]
  - CHILLS [None]
  - DIZZINESS [None]
  - HEADACHE [None]
  - PRODUCT QUALITY ISSUE [None]
  - PYREXIA [None]
  - THROAT TIGHTNESS [None]
